FAERS Safety Report 9120832 (Version 1)
Quarter: 2013Q1

REPORT INFORMATION
  Report Type: Spontaneous
  Country: US (occurrence: US)
  Receive Date: 20130226
  Receipt Date: 20130226
  Transmission Date: 20140127
  Serious: Yes (Other)
  Sender: FDA-Public Use
  Company Number: US-UCBSA-078814

PATIENT
  Age: 23 Year
  Sex: Female

DRUGS (2)
  1. CIMZIA [Suspect]
     Indication: CROHN^S DISEASE
     Dates: start: 201105
  2. PENTASA [Concomitant]
     Indication: CROHN^S DISEASE

REACTIONS (2)
  - Herpes zoster [Recovering/Resolving]
  - Blister [Recovering/Resolving]
